FAERS Safety Report 8222648-9 (Version None)
Quarter: 2012Q1

REPORT INFORMATION
  Report Type: 
  Country: None (occurrence: None)
  Receive Date: 20120320
  Receipt Date: 20120313
  Transmission Date: 20120608
  Serious: Yes (Other)
  Sender: FDA-Public Use
  Company Number: GB-US-EMD SERONO, INC.-7112962

PATIENT
  Sex: Female

DRUGS (1)
  1. SAIZEN [Suspect]
     Indication: GROWTH HORMONE DEFICIENCY
     Route: 058
     Dates: start: 20120127

REACTIONS (5)
  - ERYTHEMA [None]
  - BODY TEMPERATURE INCREASED [None]
  - SWELLING FACE [None]
  - INJECTION SITE HAEMATOMA [None]
  - TOOTH ABSCESS [None]
